FAERS Safety Report 12608495 (Version 1)
Quarter: 2016Q3

REPORT INFORMATION
  Report Type: Spontaneous
  Country: GB (occurrence: GB)
  Receive Date: 20160729
  Receipt Date: 20160729
  Transmission Date: 20161109
  Serious: Yes (Hospitalization)
  Sender: FDA-Public Use
  Company Number: GB-ASTRAZENECA-2016SE79234

PATIENT
  Age: 62 Year
  Sex: Male
  Weight: 68 kg

DRUGS (18)
  1. DIAZEPAM. [Concomitant]
     Active Substance: DIAZEPAM
  2. NUTRIZYM [Concomitant]
  3. OMEPRAZOLE. [Concomitant]
     Active Substance: OMEPRAZOLE
  4. MULTIVITAMIN [Concomitant]
     Active Substance: VITAMINS
  5. SALBUTAMOL [Concomitant]
     Active Substance: ALBUTEROL
  6. PARACETAMOL [Concomitant]
     Active Substance: ACETAMINOPHEN
  7. ATORVASTATIN [Concomitant]
     Active Substance: ATORVASTATIN
  8. LISINOPRIL. [Concomitant]
     Active Substance: LISINOPRIL
  9. TAPENTADOL [Concomitant]
     Active Substance: TAPENTADOL
  10. THIAMINE. [Concomitant]
     Active Substance: THIAMINE
  11. DAPAGLIFLOZIN [Suspect]
     Active Substance: DAPAGLIFLOZIN
     Indication: DIABETES MELLITUS
     Route: 048
     Dates: start: 20160531
  12. DULOXETINE. [Concomitant]
     Active Substance: DULOXETINE
  13. FLUTICASONE PROPIONATE\SALMETEROL XINAFOATE [Concomitant]
     Active Substance: FLUTICASONE PROPIONATE\SALMETEROL XINAFOATE
  14. TOUJEO [Concomitant]
     Active Substance: INSULIN GLARGINE
  15. ANTIBIOTICS [Concomitant]
     Active Substance: UNSPECIFIED INGREDIENT
     Indication: ASCITES
     Route: 042
  16. METFORMIN HYDROCHLORIDE. [Concomitant]
     Active Substance: METFORMIN HYDROCHLORIDE
  17. NOVORAPID [Concomitant]
     Active Substance: INSULIN ASPART
  18. TADALAFIL [Concomitant]
     Active Substance: TADALAFIL

REACTIONS (3)
  - Hypophagia [Unknown]
  - Diabetic ketoacidosis [Recovered/Resolved]
  - Accident [Unknown]

NARRATIVE: CASE EVENT DATE: 20160712
